FAERS Safety Report 16056932 (Version 1)
Quarter: 2019Q1

REPORT INFORMATION
  Report Type: Spontaneous
  Country: BR (occurrence: BR)
  Receive Date: 20190311
  Receipt Date: 20190311
  Transmission Date: 20190418
  Serious: Yes (Other)
  Sender: FDA-Public Use
  Company Number: BR-US WORLDMEDS, LLC-USW201903-000433

PATIENT
  Age: 69 Year
  Sex: Female
  Weight: 62 kg

DRUGS (12)
  1. SIMVASTATIN. [Concomitant]
     Active Substance: SIMVASTATIN
  2. VITAMIN C [Concomitant]
     Active Substance: ASCORBIC ACID
  3. ARTROLIVE [Concomitant]
     Active Substance: CHONDROITIN SULFATE (BOVINE)\GLUCOSAMINE SULFATE
     Dates: start: 2017
  4. ARADOIS [Concomitant]
     Active Substance: LOSARTAN POTASSIUM
  5. BUSONID [Concomitant]
     Active Substance: BUDESONIDE
  6. TEGASEROD [Suspect]
     Active Substance: TEGASEROD
     Indication: CONSTIPATION
     Route: 048
     Dates: start: 2013
  7. CLOPIDOGREL [Concomitant]
     Active Substance: CLOPIDOGREL BISULFATE
  8. TEGASEROD [Suspect]
     Active Substance: TEGASEROD
     Indication: IRRITABLE BOWEL SYNDROME
  9. ALPRAZOLAM. [Concomitant]
     Active Substance: ALPRAZOLAM
  10. FORMOTEROL FUMARATE [Concomitant]
     Active Substance: FORMOTEROL FUMARATE
  11. SYMBICORT [Concomitant]
     Active Substance: BUDESONIDE\FORMOTEROL FUMARATE DIHYDRATE
  12. VITAMIN D [Concomitant]
     Active Substance: CHOLECALCIFEROL
     Dates: start: 2017

REACTIONS (17)
  - Blood pressure increased [Unknown]
  - Intentional product misuse [Unknown]
  - Abdominal distension [Not Recovered/Not Resolved]
  - Malaise [Unknown]
  - Jugular vein distension [Unknown]
  - Cholelithiasis [Unknown]
  - Dyschezia [Unknown]
  - Swelling [Unknown]
  - Intentional underdose [Unknown]
  - Drug ineffective [Unknown]
  - Wrong technique in product usage process [Unknown]
  - Nephrolithiasis [Unknown]
  - Enzyme level abnormal [Unknown]
  - Product use issue [Unknown]
  - Dyspepsia [Unknown]
  - Venous pressure jugular increased [Unknown]
  - Fatigue [Unknown]

NARRATIVE: CASE EVENT DATE: 201902
